FAERS Safety Report 6444534-7 (Version None)
Quarter: 2009Q4

REPORT INFORMATION
  Report Type: 
  Country: None (occurrence: None)
  Receive Date: 20091117
  Receipt Date: 20091117
  Transmission Date: 20100525
  Serious: No
  Sender: FDA-Public Use
  Company Number: None

PATIENT
  Age: 58 Year
  Sex: Male
  Weight: 79.1527 kg

DRUGS (1)
  1. SYNTHROID [Suspect]
     Indication: RASH GENERALISED
     Dosage: 0.025 QD PO
     Route: 048
     Dates: start: 20091001, end: 20091030

REACTIONS (1)
  - RASH GENERALISED [None]
